FAERS Safety Report 7677081-5 (Version None)
Quarter: 2011Q3

REPORT INFORMATION
  Report Type: 
  Country: None (occurrence: None)
  Receive Date: 20110811
  Receipt Date: 20110803
  Transmission Date: 20111222
  Serious: Yes (Hospitalization)
  Sender: FDA-Public Use
  Company Number: GB-ROCHE-794712

PATIENT
  Age: 80 Year
  Sex: Female

DRUGS (5)
  1. XENICAL [Suspect]
     Route: 048
     Dates: start: 20110501, end: 20110720
  2. PAROXETINE HCL [Concomitant]
     Route: 048
  3. ACETAMINOPHEN AND CODEINE PHOSPHATE [Concomitant]
     Route: 048
  4. NITRAZEPAM [Concomitant]
     Route: 048
  5. OMEPRAZOLE [Concomitant]
     Route: 048

REACTIONS (4)
  - CHOLESTASIS [None]
  - ABDOMINAL PAIN UPPER [None]
  - PANCREATITIS [None]
  - VOMITING [None]
